FAERS Safety Report 4819363-8 (Version None)
Quarter: 2005Q4

REPORT INFORMATION
  Report Type: 
  Country: None (occurrence: None)
  Receive Date: 20051012
  Receipt Date: 20050712
  Transmission Date: 20060501
  Serious: No
  Sender: FDA-Public Use
  Company Number: A03200502101

PATIENT
  Sex: Male

DRUGS (4)
  1. UROXATRAL [Suspect]
     Indication: BENIGN PROSTATIC HYPERPLASIA
     Dosage: 20 MG - ORAL
     Route: 048
     Dates: start: 20050701
  2. UROXATRAL [Suspect]
     Indication: NOCTURIA
     Dosage: 20 MG - ORAL
     Route: 048
     Dates: start: 20050701
  3. DUTASTERIDE [Concomitant]
  4. DIAZEPAM [Concomitant]

REACTIONS (5)
  - ATRIOVENTRICULAR BLOCK [None]
  - BLOOD PRESSURE DECREASED [None]
  - DIZZINESS [None]
  - ELECTROCARDIOGRAM QT INTERVAL ABNORMAL [None]
  - OVERDOSE [None]
